FAERS Safety Report 6509200-8 (Version None)
Quarter: 2009Q4

REPORT INFORMATION
  Report Type: 
  Country: None (occurrence: None)
  Receive Date: 20091221
  Receipt Date: 20090817
  Transmission Date: 20100525
  Serious: No
  Sender: FDA-Public Use
  Company Number: US-TYCO HEALTHCARE/MALLINCKRODT-T200901556

PATIENT

DRUGS (2)
  1. ULTRA-TECHNEKOW [Suspect]
     Dosage: UNK MCI, SINGLE
     Dates: start: 20090816, end: 20090816
  2. CHOLETEC [Suspect]
     Dosage: UNK
     Dates: start: 20090816, end: 20090816

REACTIONS (1)
  - URTICARIA [None]
